FAERS Safety Report 9732659 (Version 2)
Quarter: 2013Q4

REPORT INFORMATION
  Report Type: Spontaneous
  Country: US (occurrence: US)
  Receive Date: 20131205
  Receipt Date: 20131212
  Transmission Date: 20140711
  Serious: Yes (Death)
  Sender: FDA-Public Use
  Company Number: US-SA-2013SA126285

PATIENT
  Age: 95 Year
  Sex: Female

DRUGS (1)
  1. MULTAQ [Suspect]
     Route: 065
     Dates: end: 20130125

REACTIONS (1)
  - Myocardial infarction [Fatal]
